FAERS Safety Report 11289701 (Version 4)
Quarter: 2015Q4

REPORT INFORMATION
  Report Type: Spontaneous
  Country: US (occurrence: US)
  Receive Date: 20150721
  Receipt Date: 20151019
  Transmission Date: 20160304
  Serious: Yes (Other)
  Sender: FDA-Public Use
  Company Number: US-BAYER-2015-378369

PATIENT
  Age: 66 Year
  Sex: Male

DRUGS (1)
  1. NEXAVAR [Suspect]
     Active Substance: SORAFENIB
     Indication: RENAL CANCER METASTATIC
     Dosage: 200 MG, QID
     Route: 048
     Dates: start: 20150522, end: 20150708

REACTIONS (5)
  - Metastases to lung [None]
  - Drug ineffective [None]
  - Renal cancer metastatic [None]
  - Pneumonia [None]
  - Performance status decreased [None]
